FAERS Safety Report 5342049-0 (Version None)
Quarter: 2007Q2

REPORT INFORMATION
  Report Type: 
  Country: None (occurrence: None)
  Receive Date: 20070530
  Receipt Date: 20070530
  Transmission Date: 20071010
  Serious: Yes (Other)
  Sender: FDA-Public Use
  Company Number: None

PATIENT
  Sex: Female
  Weight: 60.5 kg

DRUGS (1)
  1. FAMOTIDINE [Suspect]
     Indication: PROPHYLAXIS
     Dosage: 20 MG QHS PO
     Route: 048
     Dates: start: 20070520, end: 20070523

REACTIONS (2)
  - CONFUSIONAL STATE [None]
  - HALLUCINATION [None]
